FAERS Safety Report 18562449 (Version 1)
Quarter: 2020Q4

REPORT INFORMATION
  Report Type: Spontaneous
  Country: GR (occurrence: GR)
  Receive Date: 20201201
  Receipt Date: 20201201
  Transmission Date: 20210114
  Serious: Yes (Life-Threatening, Hospitalization, Other)
  Sender: FDA-Public Use
  Company Number: GR-LUPIN PHARMACEUTICALS INC.-2020-09557

PATIENT
  Age: 52 Year
  Sex: Male

DRUGS (1)
  1. CLOMIPRAMINE [Suspect]
     Active Substance: CLOMIPRAMINE
     Indication: DRUG THERAPY
     Dosage: 5 MILLIGRAM, OVER 5 MINUTES (1 MG/MIN)
     Route: 042

REACTIONS (4)
  - Atrioventricular block complete [Recovered/Resolved]
  - Syncope [Recovered/Resolved]
  - Atrial fibrillation [Recovered/Resolved]
  - Seizure [Recovered/Resolved]
